FAERS Safety Report 9512193 (Version 1)
Quarter: 2013Q1

REPORT INFORMATION
  Report Type: Spontaneous
  Country: US (occurrence: None)
  Receive Date: 20130305
  Receipt Date: 20130305
  Transmission Date: 20140127
  Serious: Yes (Hospitalization, Disabling, Other)
  Sender: FDA-Public Use
  Company Number: 163-21880-1113219

PATIENT
  Age: 62 Year
  Sex: Male
  Weight: 89 kg

DRUGS (20)
  1. REVLIMID [Suspect]
     Indication: PLASMA CELL MYELOMA
     Dosage: 10 MG, 1 IN 1 D, PO
     Route: 048
     Dates: start: 20080711
  2. CYMBALTA (DULOXETINE HYDROCHLORIDE) (UNKNOWN) [Concomitant]
  3. FLUCONAZOLE (FLUCONAZOLE) (TABLETS) [Concomitant]
  4. GABAPENTIN (GABAPENTIN) (TABLETS) [Concomitant]
  5. HCTZ (HYDROCHLOROTHIAZIDE) (TABLETS) [Concomitant]
  6. OXYCODONE (OXYCODONE) (TABLETS) [Concomitant]
  7. OXYCONTIN (OXYCODONE HYDROCHLORIDE) (UNKNOWN) [Concomitant]
  8. ASA (ACETYLSALICYLIC ACID) (UNKNOWN) [Concomitant]
  9. DEXAMETHASONE (DEXAMETHASONE) (UNKNOWN) [Concomitant]
  10. CIPROFLOXACIN (CIPROFLOXACIN) (TABLETS) [Concomitant]
  11. COLACE (DOCUSATE SODIUM) (CAPSULES) [Concomitant]
  12. HYOSCYAMINE (HYOSCYAMINE) (TABLETS) [Concomitant]
  13. KEFLEX (CEFALEXIN MONOHYDRATE) (CAPSULES) [Concomitant]
  14. NASONEX (MONETASONE FUROATE) (SPRAY (NOT INHALATION)) [Concomitant]
  15. NYSTATIN (NYSTATIN) (SUSPENSION) [Concomitant]
  16. OMEPRAZOLE (OMEPRAZOLE) (CAPSULES) [Concomitant]
  17. ONDANSETRON (ONDANSETRON) (TABLETS) [Concomitant]
  18. PROCHLORPERAZINE MALEATE (PROCHLORPERAZINE MALEATE) (TABLETS) [Concomitant]
  19. VITAMINS D (ERGOCALCIFEROL) (CAPSULES) [Concomitant]
  20. ZITHROMAX Z-PAK (AZITHROMYCIN) (TABLETS) [Concomitant]

REACTIONS (3)
  - Plasma cell myeloma [None]
  - White blood cell count decreased [None]
  - Platelet count decreased [None]
